FAERS Safety Report 9399147 (Version 1)
Quarter: 2013Q3

REPORT INFORMATION
  Report Type: Spontaneous
  Country: FR (occurrence: FR)
  Receive Date: 20130715
  Receipt Date: 20130715
  Transmission Date: 20140515
  Serious: Yes (Life-Threatening, Hospitalization)
  Sender: FDA-Public Use
  Company Number: FR-ROCHE-1247724

PATIENT
  Age: 77 Year
  Sex: Male

DRUGS (13)
  1. MABTHERA [Suspect]
     Indication: IMMUNE THROMBOCYTOPENIC PURPURA
     Route: 042
     Dates: start: 20130228, end: 20130322
  2. CORTANCYL [Interacting]
     Indication: IMMUNE THROMBOCYTOPENIC PURPURA
     Dosage: 20 MG
     Route: 048
     Dates: start: 20130116, end: 20130515
  3. PREVISCAN (FRANCE) [Interacting]
     Indication: ATRIAL FIBRILLATION
     Route: 048
  4. PNEUMO 23 [Concomitant]
  5. ORACILLINE [Concomitant]
  6. IKOREL [Concomitant]
     Dosage: 20 MG
     Route: 048
  7. INEXIUM [Concomitant]
     Dosage: 40 MG
     Route: 048
  8. AMLOR [Concomitant]
     Dosage: 5 MG
     Route: 048
  9. CRESTOR [Concomitant]
     Dosage: 10 MG
     Route: 048
  10. LODOZ [Concomitant]
     Dosage: 5 MG / 6.25 MG
     Route: 048
  11. ZYLORIC [Concomitant]
     Indication: LUNG INFECTION
     Route: 048
  12. ZELITREX [Concomitant]
     Route: 048
     Dates: start: 20130322
  13. PRADAXA [Concomitant]

REACTIONS (4)
  - Phlebitis [Recovered/Resolved]
  - Pulmonary embolism [Recovered/Resolved]
  - Dyspnoea exertional [Recovered/Resolved]
  - Drug interaction [Recovered/Resolved]
